FAERS Safety Report 4928628-0 (Version None)
Quarter: 2006Q1

REPORT INFORMATION
  Report Type: 
  Country: None (occurrence: None)
  Receive Date: 20060227
  Receipt Date: 20060227
  Transmission Date: 20060701
  Serious: Yes (Life-Threatening)
  Sender: FDA-Public Use
  Company Number: None

PATIENT
  Sex: Female
  Weight: 37 kg

DRUGS (1)
  1. TOPOSAR [Suspect]
     Indication: GERM CELL CANCER
     Dosage: 200 MG   DAILY X 3   IV
     Route: 042
     Dates: start: 20060226

REACTIONS (3)
  - INFUSION RELATED REACTION [None]
  - RESPIRATORY DISTRESS [None]
  - SWELLING FACE [None]
